FAERS Safety Report 8470625-5 (Version None)
Quarter: 2012Q2

REPORT INFORMATION
  Report Type: 
  Country: None (occurrence: None)
  Receive Date: 20120627
  Receipt Date: 20120622
  Transmission Date: 20120825
  Serious: Yes (Death)
  Sender: FDA-Public Use
  Company Number: PHHY2012MX049450

PATIENT
  Sex: Male

DRUGS (6)
  1. METOPROLOL TARTRATE [Concomitant]
     Indication: HYPERTENSION
     Dosage: 1 DF, BID/TWICE DAILY
  2. KETOROLAC TROMETHAMINE [Concomitant]
     Indication: PAIN
     Dosage: 3 DF, UNK
     Dates: start: 20120328
  3. EXELON [Suspect]
     Indication: AMNESIA
     Dosage: 9.5MG\24 HRS
     Route: 062
     Dates: start: 20120308
  4. METFORMIN HCL [Concomitant]
     Indication: DIABETES MELLITUS
     Dosage: UNK UKN, UNK
     Dates: start: 20080101
  5. ATACAND [Concomitant]
     Indication: HYPERTENSION
     Dosage: 1 DF, QD/ONCE DAILY
     Dates: start: 20120328
  6. CELEBREX [Concomitant]
     Indication: MEMORY IMPAIRMENT
     Dosage: 1 DF, BID/TWICE A DAY
     Dates: start: 20120328

REACTIONS (4)
  - RENAL INJURY [None]
  - RESPIRATORY FAILURE [None]
  - URINARY TRACT INFECTION [None]
  - MYOCARDIAL INFARCTION [None]
